FAERS Safety Report 8789823 (Version 3)
Quarter: 2014Q2

REPORT INFORMATION
  Report Type: Spontaneous
  Country: ES (occurrence: ES)
  Receive Date: 20120917
  Receipt Date: 20140623
  Transmission Date: 20141212
  Serious: Yes (Other)
  Sender: FDA-Public Use
  Company Number: ES-009507513-1003ESP00037

PATIENT
  Age: 35 Year
  Sex: Female

DRUGS (9)
  1. ISENTRESS [Suspect]
     Indication: HIV INFECTION
     Dosage: 400 MG, BID
     Route: 048
     Dates: start: 20080930, end: 20081103
  2. ISENTRESS [Suspect]
     Dosage: 400 MG, BID
     Route: 048
     Dates: start: 20100301
  3. PREZISTA [Concomitant]
     Indication: HIV INFECTION
     Dosage: 1200 MG, QD
     Route: 048
     Dates: start: 20080930, end: 200810
  4. PREZISTA [Concomitant]
     Dosage: 1200 MG, QD
     Route: 048
     Dates: start: 20100301
  5. NORVIR [Concomitant]
     Indication: HIV INFECTION
     Dosage: UNK
     Route: 048
     Dates: start: 20080930, end: 200810
  6. NORVIR [Concomitant]
     Dosage: UNK
     Route: 048
     Dates: start: 20100301
  7. TRUVADA [Concomitant]
     Indication: HIV INFECTION
     Route: 048
     Dates: start: 20080930, end: 200810
  8. COMBIVIR [Concomitant]
     Dosage: UNK
     Route: 048
     Dates: start: 20100318
  9. CORTICOSTEROIDS (UNSPECIFIED) [Concomitant]
     Indication: MATERNAL THERAPY TO ENHANCE FOETAL LUNG MATURITY
     Dates: start: 20100824, end: 20100826

REACTIONS (5)
  - Premature rupture of membranes [Recovered/Resolved]
  - Cervical dysplasia [Unknown]
  - Victim of spousal abuse [Unknown]
  - Oesophageal candidiasis [Unknown]
  - Maternal exposure timing unspecified [Recovered/Resolved]
